FAERS Safety Report 4703910-0 (Version None)
Quarter: 2005Q2

REPORT INFORMATION
  Report Type: 
  Country: None (occurrence: None)
  Receive Date: 20050629
  Receipt Date: 20050629
  Transmission Date: 20051028
  Serious: No
  Sender: FDA-Public Use
  Company Number: None

PATIENT
  Age: 78 Year
  Sex: Female
  Weight: 50 kg

DRUGS (5)
  1. ZOSYN [Suspect]
     Indication: FASCIITIS
     Dosage: ZOSYN    2.25MG   INTRAVENOU
     Route: 042
     Dates: start: 20041130, end: 20041202
  2. ACETAMINOPHEN [Concomitant]
  3. CASPOFUNGIN [Concomitant]
  4. CALCIUM GLUCONATE [Concomitant]
  5. ERYTHROPOETIN [Concomitant]

REACTIONS (3)
  - ENZYME ABNORMALITY [None]
  - HYPERBILIRUBINAEMIA [None]
  - JAUNDICE [None]
